FAERS Safety Report 23336019 (Version 4)
Quarter: 2024Q2

REPORT INFORMATION
  Report Type: Spontaneous
  Country: AR (occurrence: AR)
  Receive Date: 20231225
  Receipt Date: 20240507
  Transmission Date: 20240716
  Serious: Yes (Death, Hospitalization, Other)
  Sender: FDA-Public Use
  Company Number: AR-OEPI8P-1235

PATIENT

DRUGS (3)
  1. NERLYNX [Suspect]
     Active Substance: NERATINIB
     Indication: Breast cancer metastatic
     Dosage: SHE WAS CURRENTLY NOT TAKING THE MEDICATION SINCE HER CLINICAL STATE IS CRITICAL.
     Route: 048
     Dates: start: 20230901
  2. LOPERAMIDE [Concomitant]
     Active Substance: LOPERAMIDE
     Indication: Product used for unknown indication
     Dosage: DOSAGE: AS NEEDED.
  3. LOPERAMIDE [Concomitant]
     Active Substance: LOPERAMIDE
     Dosage: DOSAGE: AS NEEDED.

REACTIONS (3)
  - Pulmonary oedema [Unknown]
  - Oxygen saturation decreased [Unknown]
  - Death [Fatal]
